FAERS Safety Report 22648711 (Version 1)
Quarter: 2023Q2

REPORT INFORMATION
  Report Type: Spontaneous
  Country: ES (occurrence: ES)
  Receive Date: 20230628
  Receipt Date: 20230628
  Transmission Date: 20230722
  Serious: Yes (Other)
  Sender: FDA-Public Use
  Company Number: None

PATIENT
  Age: 54 Year
  Sex: Female

DRUGS (4)
  1. IMRALDI [Suspect]
     Active Substance: ADALIMUMAB
     Indication: Psoriatic arthropathy
     Dosage: IMRALDI 40 MG SOLUTION FOR INJECTION IN PRE-FILLED SYRINGE, ONE PRE-FILLED SYRINGE OF 0.8 ML;
     Route: 058
     Dates: start: 20221107, end: 20221107
  2. VIMOVO [Concomitant]
     Active Substance: ESOMEPRAZOLE MAGNESIUM\NAPROXEN
     Indication: Product used for unknown indication
     Dosage: VIMOVO 500 MG/20 MG MODIFIED-RELEASE TABLETS, 60 TABLETS;
     Route: 048
     Dates: start: 20190724
  3. LEVOTHYROXINE SODIUM [Concomitant]
     Active Substance: LEVOTHYROXINE SODIUM
     Indication: Product used for unknown indication
     Dosage: EUTIROX 75 MICROGRAM TABLETS, 100 TABLETS;
     Route: 048
     Dates: start: 20170608
  4. ZALDIAR [Concomitant]
     Active Substance: ACETAMINOPHEN\TRAMADOL HYDROCHLORIDE
     Indication: Product used for unknown indication
     Dosage: ZALDIAR 37.5 MG/325 MG FILM-COATED TABLETS, 20 TABLETS;
     Route: 048
     Dates: start: 20220801

REACTIONS (3)
  - Toxic skin eruption [Recovered/Resolved]
  - Paradoxical psoriasis [Recovered/Resolved]
  - Hypertransaminasaemia [Unknown]

NARRATIVE: CASE EVENT DATE: 20221121
